FAERS Safety Report 6023588-6 (Version None)
Quarter: 2008Q4

REPORT INFORMATION
  Report Type: 
  Country: None (occurrence: None)
  Receive Date: 20081226
  Receipt Date: 20081226
  Transmission Date: 20090506
  Serious: No
  Sender: FDA-Public Use
  Company Number: None

PATIENT
  Age: 18 Year
  Sex: Female
  Weight: 68.0396 kg

DRUGS (1)
  1. LEXAPRO [Suspect]
     Indication: INSOMNIA
     Dosage: 10 MG DAY PO
     Route: 048
     Dates: start: 20081124, end: 20081224

REACTIONS (8)
  - ANHEDONIA [None]
  - DEHYDRATION [None]
  - FEELING ABNORMAL [None]
  - HUNGER [None]
  - HYPERHIDROSIS [None]
  - LOSS OF LIBIDO [None]
  - PAIN [None]
  - THIRST [None]
